FAERS Safety Report 5368978-X (Version None)
Quarter: 2007Q2

REPORT INFORMATION
  Report Type: 
  Country: None (occurrence: None)
  Receive Date: 20070625
  Receipt Date: 20061207
  Transmission Date: 20071010
  Serious: Yes (Other)
  Sender: FDA-Public Use
  Company Number: US-ASTRAZENECA-2006UW27279

PATIENT
  Age: 67 Year
  Sex: Male

DRUGS (6)
  1. CRESTOR [Suspect]
     Route: 048
     Dates: end: 20061101
  2. ATENOLOL [Concomitant]
  3. LISINOPRIL [Concomitant]
     Dates: end: 20061101
  4. FLOMAX [Concomitant]
  5. ASPIRIN [Concomitant]
  6. NIASPAN [Concomitant]

REACTIONS (1)
  - LEUKOPENIA [None]
